FAERS Safety Report 8328620-2 (Version None)
Quarter: 2012Q2

REPORT INFORMATION
  Report Type: 
  Country: None (occurrence: None)
  Receive Date: 20120502
  Receipt Date: 20100824
  Transmission Date: 20120825
  Serious: No
  Sender: FDA-Public Use
  Company Number: US-TEVA-2010004111

PATIENT
  Sex: Male
  Weight: 65.83 kg

DRUGS (5)
  1. CRESTOR [Suspect]
     Indication: HYPERCHOLESTEROLAEMIA
     Route: 048
  2. NUVIGIL [Suspect]
     Indication: SOMNOLENCE
     Dosage: 75 MILLIGRAM;
     Route: 048
     Dates: start: 20100804, end: 20100804
  3. AMIODARONE HCL [Concomitant]
     Indication: ARRHYTHMIA
  4. PLAVIX [Concomitant]
     Indication: ATHEROSCLEROSIS PROPHYLAXIS
  5. TEKTURNA [Suspect]
     Indication: HYPERTENSION
     Route: 048

REACTIONS (2)
  - DRY MOUTH [None]
  - MUSCLE TIGHTNESS [None]
